FAERS Safety Report 15762393 (Version 1)
Quarter: 2018Q4

REPORT INFORMATION
  Report Type: Report from Study
  Country: US (occurrence: US)
  Receive Date: 20181226
  Receipt Date: 20181226
  Transmission Date: 20190205
  Serious: Yes (Hospitalization, Disabling)
  Sender: FDA-Public Use
  Company Number: US-ACTELION-A-US2017-154083

PATIENT
  Age: 85 Year
  Sex: Female

DRUGS (2)
  1. OPSUMIT [Suspect]
     Active Substance: MACITENTAN
     Indication: PULMONARY ARTERIAL HYPERTENSION
     Dosage: 10 MG, QD
     Route: 048
     Dates: start: 20170420
  2. OPSUMIT [Suspect]
     Active Substance: MACITENTAN
     Dosage: EVERY 2 OR 3 DAYS
     Route: 048

REACTIONS (3)
  - Hospitalisation [Unknown]
  - Product administration error [Unknown]
  - Headache [Unknown]
